FAERS Safety Report 5406902-1 (Version None)
Quarter: 2007Q3

REPORT INFORMATION
  Report Type: 
  Country: None (occurrence: None)
  Receive Date: 20070802
  Receipt Date: 20070723
  Transmission Date: 20080115
  Serious: Yes (Hospitalization)
  Sender: FDA-Public Use
  Company Number: B0480763A

PATIENT
  Age: 16 Year
  Sex: Female

DRUGS (3)
  1. WARFARIN SODIUM [Suspect]
     Dosage: 160 MG/SINGLE DOSE/ORAL
     Route: 048
  2. DIGOXIN [Suspect]
     Dosage: 5 MG/SINGLE DOSE/ORAL
     Route: 048
  3. PROPAFENONE TABLET (PROPAFENONE) [Suspect]
     Dosage: 4.5 MG/KSINGLE DOSE/ORAL
     Route: 048

REACTIONS (7)
  - BRADYCARDIA [None]
  - DRUG INTERACTION [None]
  - DRUG TOXICITY [None]
  - HYPOTENSION [None]
  - MULTIPLE DRUG OVERDOSE INTENTIONAL [None]
  - SUICIDE ATTEMPT [None]
  - THERAPEUTIC AGENT TOXICITY [None]
